FAERS Safety Report 5297647-X (Version None)
Quarter: 2007Q2

REPORT INFORMATION
  Report Type: 
  Country: None (occurrence: None)
  Receive Date: 20070416
  Receipt Date: 20070410
  Transmission Date: 20071010
  Serious: Yes (Life-Threatening)
  Sender: FDA-Public Use
  Company Number: 2007SE01945

PATIENT
  Age: 69 Year
  Sex: Male
  Weight: 69 kg

DRUGS (18)
  1. AMIAS [Suspect]
     Indication: HYPERTENSION
     Route: 048
     Dates: start: 20061101, end: 20070301
  2. ALENDRONIC ACID [Concomitant]
     Route: 048
  3. ASPIRIN [Concomitant]
     Route: 048
  4. ATORVASTATIN CALCIUM [Concomitant]
     Route: 048
  5. BUMETANIDE [Concomitant]
     Route: 048
  6. CALCICHEW D3 [Concomitant]
     Route: 048
  7. CARBOCISTEINE [Concomitant]
     Route: 048
  8. CIPROFLOXACIN [Concomitant]
     Route: 048
     Dates: start: 20070201
  9. COMBIVENT [Concomitant]
     Route: 055
  10. DIGOXIN [Concomitant]
     Route: 048
  11. FERROUS SULFATE TAB [Concomitant]
     Route: 048
  12. INSULIN [Concomitant]
     Route: 065
  13. NEBILET [Concomitant]
     Route: 048
  14. OMEPRAZOLE [Concomitant]
     Route: 048
  15. PHENYTOIN SODIUM [Concomitant]
     Route: 048
  16. PHOLCODEIN [Concomitant]
     Indication: BRONCHIECTASIS
     Route: 048
     Dates: start: 20070301
  17. SERETIDE [Concomitant]
     Route: 055
  18. SPIRONOLACTONE [Concomitant]
     Route: 048

REACTIONS (2)
  - ANAPHYLACTIC SHOCK [None]
  - ANGIOEDEMA [None]
